FAERS Safety Report 7091371-9 (Version None)
Quarter: 2010Q4

REPORT INFORMATION
  Report Type: 
  Country: None (occurrence: None)
  Receive Date: 20101109
  Receipt Date: 20101104
  Transmission Date: 20110411
  Serious: Yes (Other)
  Sender: FDA-Public Use
  Company Number: A0886728A

PATIENT
  Sex: Male

DRUGS (7)
  1. VOTRIENT [Suspect]
     Indication: RENAL CELL CARCINOMA
     Dosage: 800MG PER DAY
     Route: 048
     Dates: start: 20101007
  2. LORAZEPAM [Concomitant]
  3. JANUVIA [Concomitant]
  4. GLIMEPIRIDE [Concomitant]
  5. FUROSEMIDE [Concomitant]
  6. COREG CR [Concomitant]
  7. LIPITOR [Concomitant]

REACTIONS (16)
  - BLOOD PRESSURE INCREASED [None]
  - CHEST PAIN [None]
  - DIARRHOEA [None]
  - DIZZINESS [None]
  - DRY SKIN [None]
  - EPISTAXIS [None]
  - FATIGUE [None]
  - HAEMATOCHEZIA [None]
  - ILL-DEFINED DISORDER [None]
  - MYALGIA [None]
  - NAUSEA [None]
  - OROPHARYNGEAL BLISTERING [None]
  - PALPITATIONS [None]
  - PRURITUS [None]
  - SKIN DISCOLOURATION [None]
  - TONGUE BLISTERING [None]
